FAERS Safety Report 8380176-4 (Version None)
Quarter: 2012Q2

REPORT INFORMATION
  Report Type: 
  Country: None (occurrence: None)
  Receive Date: 20120523
  Receipt Date: 20120516
  Transmission Date: 20120825
  Serious: Yes (Other)
  Sender: FDA-Public Use
  Company Number: MX-UCBSA-057489

PATIENT
  Age: 20 Year
  Sex: Female
  Weight: 45 kg

DRUGS (3)
  1. VIMPAT [Suspect]
     Route: 048
     Dates: start: 20120326, end: 20120401
  2. CLONAZEPAM [Concomitant]
     Indication: EPILEPSY
     Route: 048
     Dates: start: 20110112
  3. VIMPAT [Suspect]
     Indication: EPILEPSY
     Route: 048
     Dates: start: 20120402, end: 20120414

REACTIONS (1)
  - CONVULSION [None]
